FAERS Safety Report 9294011 (Version 1)
Quarter: 2013Q1

REPORT INFORMATION
  Report Type: Spontaneous
  Country: US (occurrence: None)
  Receive Date: 20121227
  Receipt Date: 20121227
  Transmission Date: 20140127
  Serious: Yes (Other)
  Sender: FDA-Public Use
  Company Number: PHEH2012US004991

PATIENT
  Age: 70 Year
  Sex: Male
  Weight: 109 kg

DRUGS (3)
  1. EXJADE [Suspect]
     Indication: IRON OVERLOAD
     Route: 048
     Dates: start: 201110, end: 20120220
  2. CEFALEXIN (CEFALEXIN) [Concomitant]
  3. METFORMIN (METFORMIN) [Concomitant]

REACTIONS (1)
  - Deafness [None]
